FAERS Safety Report 8574958-3 (Version None)
Quarter: 2012Q3

REPORT INFORMATION
  Report Type: 
  Country: None (occurrence: None)
  Receive Date: 20120807
  Receipt Date: 20120802
  Transmission Date: 20120928
  Serious: Yes (Other)
  Sender: FDA-Public Use
  Company Number: US-SANOFI-AVENTIS-2012SA056004

PATIENT
  Sex: Female

DRUGS (3)
  1. ACTOS [Suspect]
     Route: 065
  2. ALL OTHER THERAPEUTIC PRODUCTS [Concomitant]
  3. LANTUS [Suspect]
     Indication: DIABETES MELLITUS
     Route: 058

REACTIONS (4)
  - CEREBROVASCULAR ACCIDENT [None]
  - DYSLEXIA [None]
  - LIVER DISORDER [None]
  - BLOOD GLUCOSE INCREASED [None]
